FAERS Safety Report 14876536 (Version 2)
Quarter: 2018Q4

REPORT INFORMATION
  Report Type: Spontaneous
  Country: JP (occurrence: JP)
  Receive Date: 20180510
  Receipt Date: 20181115
  Transmission Date: 20190204
  Serious: Yes (Hospitalization)
  Sender: FDA-Public Use
  Company Number: JP-EISAI MEDICAL RESEARCH-EC-2018-039664

PATIENT
  Age: 66 Year
  Sex: Male
  Weight: 66 kg

DRUGS (2)
  1. LENVIMA [Suspect]
     Active Substance: LENVATINIB
     Indication: HEPATOCELLULAR CARCINOMA
     Route: 048
     Dates: start: 20180426, end: 20180429
  2. LENVIMA [Suspect]
     Active Substance: LENVATINIB
     Route: 048
     Dates: start: 20181015, end: 20181017

REACTIONS (1)
  - Tumour haemorrhage [Recovered/Resolved]

NARRATIVE: CASE EVENT DATE: 20180429
